FAERS Safety Report 8603583-0 (Version None)
Quarter: 2012Q3

REPORT INFORMATION
  Report Type: 
  Country: None (occurrence: None)
  Receive Date: 20120817
  Receipt Date: 20120808
  Transmission Date: 20120928
  Serious: Yes (Hospitalization)
  Sender: FDA-Public Use
  Company Number: US-ASTRAZENECA-2012SE41102

PATIENT
  Age: 27106 Day
  Sex: Male

DRUGS (7)
  1. BRILINTA [Suspect]
     Indication: CORONARY ARTERY DISEASE
     Route: 048
     Dates: start: 20120517, end: 20120605
  2. LISINOPRIL [Concomitant]
     Indication: HYPERTENSION
     Route: 048
     Dates: end: 20120612
  3. CRESTOR [Concomitant]
     Indication: DYSLIPIDAEMIA
     Route: 048
     Dates: end: 20120612
  4. SUBLINGUAL NTG [Concomitant]
     Indication: ANGINA PECTORIS
     Route: 060
  5. METOPROLOL TARTRATE [Concomitant]
     Indication: HYPERTENSION
     Route: 048
  6. PLAVIX [Concomitant]
     Indication: CORONARY ARTERY DISEASE
     Route: 048
     Dates: end: 20120516
  7. ASPIRIN [Concomitant]
     Route: 048

REACTIONS (2)
  - THROMBOCYTOPENIA [None]
  - GASTROENTERITIS [None]
